FAERS Safety Report 8310575-8 (Version None)
Quarter: 2012Q2

REPORT INFORMATION
  Report Type: 
  Country: None (occurrence: None)
  Receive Date: 20120425
  Receipt Date: 20120419
  Transmission Date: 20120825
  Serious: Yes (Other)
  Sender: FDA-Public Use
  Company Number: AU-ROCHE-1061818

PATIENT
  Age: 45 Year

DRUGS (4)
  1. HERCEPTIN [Suspect]
     Indication: BREAST CANCER
  2. LAPATINIB [Concomitant]
  3. DOXORUBICIN HYDROCHLORIDE [Concomitant]
  4. XELODA [Suspect]
     Indication: BREAST CANCER
     Route: 048

REACTIONS (2)
  - DISEASE PROGRESSION [None]
  - EJECTION FRACTION DECREASED [None]
